FAERS Safety Report 10156447 (Version 1)
Quarter: 2014Q2

REPORT INFORMATION
  Report Type: Report from Study
  Country: FR (occurrence: FR)
  Receive Date: 20140507
  Receipt Date: 20140507
  Transmission Date: 20141212
  Serious: Yes (Other)
  Sender: FDA-Public Use
  Company Number: FR-ROCHE-1392120

PATIENT
  Sex: Female

DRUGS (12)
  1. RITUXIMAB [Suspect]
     Indication: RHEUMATOID ARTHRITIS
     Dosage: SECOND INFUSION OF RITUXIMAB 1 G (D15) ON 19/APR/2007
     Route: 041
     Dates: start: 20070405
  2. RITUXIMAB [Suspect]
     Dosage: SECOND INFUSION OF RITUXIMAB: 500 MG (D15) ON 13/OCT/2010.
     Route: 041
     Dates: start: 20100929
  3. RITUXIMAB [Suspect]
     Dosage: SECOND INFUSION OF RITUXIMAB 500 MG (D15) ON 14-OCT-2011
     Route: 041
     Dates: start: 20110930
  4. RITUXIMAB [Suspect]
     Route: 041
     Dates: start: 20120516
  5. RITUXIMAB [Suspect]
     Route: 041
     Dates: start: 20121128
  6. RITUXIMAB [Suspect]
     Route: 041
     Dates: start: 20130605
  7. CORTANCYL [Concomitant]
     Route: 065
  8. CORTANCYL [Concomitant]
     Route: 065
  9. CORTANCYL [Concomitant]
     Route: 065
  10. CORTANCYL [Concomitant]
     Route: 065
  11. METHOTREXATE [Concomitant]
     Route: 065
  12. LEFLUNOMIDE [Concomitant]

REACTIONS (6)
  - Gastric neoplasm [Unknown]
  - Dermatitis [Unknown]
  - Diverticulum intestinal [Unknown]
  - Toxic skin eruption [Recovered/Resolved]
  - Monoclonal gammopathy [Unknown]
  - Angina pectoris [Recovered/Resolved]
